FAERS Safety Report 14595489 (Version 1)
Quarter: 2018Q1

REPORT INFORMATION
  Report Type: Other
  Country: CA (occurrence: US)
  Receive Date: 20180302
  Receipt Date: 20180302
  Transmission Date: 20180509
  Serious: Yes (Other)
  Sender: FDA-Public Use
  Company Number: US-APOLLO HEALTH AND BEAUTY CARE INC.-2042897

PATIENT
  Sex: Female

DRUGS (1)
  1. ACNE CONTROL CLEANSER [Suspect]
     Active Substance: BENZOYL PEROXIDE

REACTIONS (1)
  - Rash [None]
